FAERS Safety Report 9355644 (Version 2)
Quarter: 2013Q3

REPORT INFORMATION
  Report Type: Spontaneous
  Country: US (occurrence: US)
  Receive Date: 20130619
  Receipt Date: 20130710
  Transmission Date: 20140515
  Serious: No
  Sender: FDA-Public Use
  Company Number: US-B.I. PHARMACEUTICALS,INC./RIDGEFIELD-2013-BI-16677BP

PATIENT
  Age: 94 Year
  Sex: Female
  Weight: 57 kg

DRUGS (2)
  1. MICARDIS HCT TABLETS [Suspect]
     Indication: HYPERTENSION
     Dosage: STRENGTH: 80 MG/25 MG; DAILY DOSE: 80 MG/25 MG
     Route: 048
     Dates: start: 1999, end: 20130520
  2. MICARDIS HCT TABLETS [Suspect]
     Dosage: STRENGTH: 80 MG / 25 MG; DAILY DOSE: 80 MG/ 25 MG
     Route: 048
     Dates: start: 20130610

REACTIONS (5)
  - Blood uric acid increased [Recovered/Resolved]
  - Fluid retention [Not Recovered/Not Resolved]
  - Blood pressure fluctuation [Not Recovered/Not Resolved]
  - Hyperuricaemia [Recovered/Resolved]
  - Labile hypertension [Not Recovered/Not Resolved]
